FAERS Safety Report 19931023 (Version 1)
Quarter: 2021Q4

REPORT INFORMATION
  Report Type: Spontaneous
  Country: CN (occurrence: CN)
  Receive Date: 20211007
  Receipt Date: 20211007
  Transmission Date: 20220303
  Serious: Yes (Disabling)
  Sender: FDA-Public Use
  Company Number: CN-PFIZER INC-202101289038

PATIENT
  Age: 56 Year
  Sex: Male
  Weight: 58 kg

DRUGS (4)
  1. CYTARABINE [Suspect]
     Active Substance: CYTARABINE
     Indication: Lymphoma
     Dosage: 1 G, 2X/DAY
     Route: 041
     Dates: start: 20210903, end: 20210904
  2. METHOTREXATE [Suspect]
     Active Substance: METHOTREXATE
     Indication: Lymphoma
     Dosage: 1.2 G, 1X/DAY
     Route: 041
     Dates: start: 20210902, end: 20210902
  3. SODIUM CHLORIDE [Suspect]
     Active Substance: SODIUM CHLORIDE
     Indication: Lymphoma
     Dosage: 500 ML, 1X/DAY
     Route: 041
     Dates: start: 20210902, end: 20210902
  4. SODIUM CHLORIDE [Suspect]
     Active Substance: SODIUM CHLORIDE
     Dosage: 500 ML, 2X/DAY
     Route: 041
     Dates: start: 20210903, end: 20210904

REACTIONS (4)
  - Full blood count decreased [Unknown]
  - Mouth haemorrhage [Unknown]
  - Ecchymosis [Unknown]
  - Myelosuppression [Unknown]

NARRATIVE: CASE EVENT DATE: 20210916
